FAERS Safety Report 20572409 (Version 2)
Quarter: 2022Q3

REPORT INFORMATION
  Report Type: Spontaneous
  Country: US (occurrence: US)
  Receive Date: 20220309
  Receipt Date: 20220724
  Transmission Date: 20221026
  Serious: No
  Sender: FDA-Public Use
  Company Number: US-SA-SAC20220307000071

PATIENT
  Age: 30 Year
  Sex: Female

DRUGS (4)
  1. DUPILUMAB [Suspect]
     Active Substance: DUPILUMAB
     Indication: Asthma
     Dosage: 200 MG, QOW
     Route: 058
     Dates: start: 202109
  2. DUPILUMAB [Suspect]
     Active Substance: DUPILUMAB
     Indication: Hypogammaglobulinaemia
  3. DUPILUMAB [Suspect]
     Active Substance: DUPILUMAB
     Indication: Ill-defined disorder
  4. HIZENTRA [Concomitant]
     Active Substance: HUMAN IMMUNOGLOBULIN G

REACTIONS (2)
  - Pain [Not Recovered/Not Resolved]
  - Product use in unapproved indication [Unknown]
